FAERS Safety Report 6734637-1 (Version None)
Quarter: 2010Q2

REPORT INFORMATION
  Report Type: 
  Country: None (occurrence: None)
  Receive Date: 20100519
  Receipt Date: 20100505
  Transmission Date: 20101027
  Serious: Yes (Hospitalization)
  Sender: FDA-Public Use
  Company Number: 011003

PATIENT
  Sex: Female
  Weight: 85.9 kg

DRUGS (6)
  1. LEVETIRACETAM [Suspect]
     Indication: CONVULSION
     Dosage: 500 MG QD ORAL
     Route: 048
     Dates: start: 20090101
  2. KEPPRA [Suspect]
     Indication: NEUROPATHY PERIPHERAL
     Dosage: 500 MG QD ORAL
     Route: 048
     Dates: start: 20080101
  3. KEPPRA [Suspect]
     Indication: NEUROPATHY PERIPHERAL
     Dosage: 500 MG QD, AT BEDTIME ORAL
     Route: 048
     Dates: start: 20090101
  4. NEURONTIN [Concomitant]
  5. SYNTHROID [Concomitant]
  6. TOPROL-XL [Concomitant]

REACTIONS (8)
  - ASTHENIA [None]
  - BRONCHITIS [None]
  - DIZZINESS [None]
  - HEADACHE [None]
  - HYPOTENSION [None]
  - NAUSEA [None]
  - PNEUMONIA BACTERIAL [None]
  - VISUAL ACUITY REDUCED [None]
